FAERS Safety Report 14016723 (Version 3)
Quarter: 2017Q4

REPORT INFORMATION
  Report Type: Spontaneous
  Country: JP (occurrence: JP)
  Receive Date: 20170927
  Receipt Date: 20171026
  Transmission Date: 20180321
  Serious: Yes (Hospitalization, Other)
  Sender: FDA-Public Use
  Company Number: JP-SA-2017SA180783

PATIENT
  Age: 3 Year
  Sex: Male

DRUGS (5)
  1. LEVOCETIRIZINE [Suspect]
     Active Substance: LEVOCETIRIZINE
     Indication: RHINORRHOEA
     Route: 048
     Dates: start: 20170914, end: 20170914
  2. PRANLUKAST [Concomitant]
     Active Substance: PRANLUKAST
     Route: 065
     Dates: start: 20170914
  3. ASVERIN (TIPEPIDINE HIBENZATE) [Concomitant]
     Active Substance: TIPEPIDINE HIBENZATE
  4. CARBOCISTEINE [Concomitant]
     Active Substance: CARBOCYSTEINE
  5. LEVOCETIRIZINE [Suspect]
     Active Substance: LEVOCETIRIZINE
     Indication: RHINORRHOEA
     Route: 048
     Dates: start: 20170914, end: 20170914

REACTIONS (6)
  - Loss of consciousness [Recovered/Resolved]
  - Vomiting [Recovering/Resolving]
  - Disorientation [Recovered/Resolved]
  - Febrile convulsion [Recovered/Resolved]
  - Somnolence [Recovered/Resolved]
  - Pyrexia [Recovering/Resolving]

NARRATIVE: CASE EVENT DATE: 20170915
